FAERS Safety Report 5030523-6 (Version None)
Quarter: 2006Q2

REPORT INFORMATION
  Report Type: 
  Country: None (occurrence: None)
  Receive Date: 20060615
  Receipt Date: 20060607
  Transmission Date: 20061013
  Serious: Yes (Death)
  Sender: FDA-Public Use
  Company Number: RS006072-USA

PATIENT
  Age: 88 Year
  Sex: Male

DRUGS (1)
  1. ACIPHEX [Suspect]
     Dosage: 20 MG, ORAL
     Route: 048
     Dates: start: 20060501

REACTIONS (2)
  - NEPHRITIS INTERSTITIAL [None]
  - RENAL FAILURE [None]
